FAERS Safety Report 5741101-5 (Version None)
Quarter: 2008Q2

REPORT INFORMATION
  Report Type: 
  Country: None (occurrence: None)
  Receive Date: 20080514
  Receipt Date: 20080507
  Transmission Date: 20081010
  Serious: Yes (Hospitalization)
  Sender: FDA-Public Use
  Company Number: CHPA2008US07808

PATIENT
  Age: 48 Year
  Sex: Male

DRUGS (4)
  1. GAS-X EXTRA STRENGTH SOFTGELS [Suspect]
     Indication: FLATULENCE
     Dosage: 250 MG, ONCE/SINGLE, ORAL, 250 MG, ONCE/SINGLE, ORAL
     Route: 048
     Dates: start: 20080503
  2. BENADRYL [Suspect]
     Indication: LIP SWELLING
  3. TRAMADOL HCL [Concomitant]
  4. ALEVE (CAPLET) [Concomitant]

REACTIONS (5)
  - CHEST PAIN [None]
  - DRUG EFFECT DECREASED [None]
  - LIP SWELLING [None]
  - SWELLING FACE [None]
  - URTICARIA [None]
